FAERS Safety Report 20186689 (Version 1)
Quarter: 2021Q4

REPORT INFORMATION
  Report Type: Spontaneous
  Country: US (occurrence: US)
  Receive Date: 20211215
  Receipt Date: 20211215
  Transmission Date: 20220303
  Serious: Yes (Other)
  Sender: FDA-Public Use
  Company Number: US-NOVARTISPH-NVSC2021US280523

PATIENT
  Age: 5 Year
  Sex: Female

DRUGS (9)
  1. CARBOPLATIN [Suspect]
     Active Substance: CARBOPLATIN
     Indication: Neurofibromatosis
     Dosage: UNK, QW
     Route: 065
     Dates: start: 20170906, end: 20171106
  2. TRAMETINIB [Suspect]
     Active Substance: TRAMETINIB
     Indication: Neurofibromatosis
     Dosage: 0.287 MG, QD
     Route: 048
     Dates: start: 20190227, end: 20190307
  3. VINCRISTINE [Suspect]
     Active Substance: VINCRISTINE
     Indication: Neurofibromatosis
     Dosage: 4 DOSES
     Route: 065
     Dates: start: 20170906, end: 20171106
  4. VINBLASTINE [Suspect]
     Active Substance: VINBLASTINE
     Indication: Neurofibromatosis
     Dosage: UNK UNK, QW
     Route: 065
     Dates: start: 20180115, end: 20180808
  5. VINBLASTINE [Suspect]
     Active Substance: VINBLASTINE
     Dosage: UNK UNK, Q2W (RECEIVED 30 DOSES TOTALLY)
     Route: 065
     Dates: start: 20180912, end: 20190116
  6. AVASTIN [Suspect]
     Active Substance: BEVACIZUMAB
     Indication: Neurofibromatosis
     Dosage: 10 MG/KG, QD, 14 DAYS
     Route: 042
     Dates: start: 20190410, end: 20190520
  7. AVASTIN [Suspect]
     Active Substance: BEVACIZUMAB
     Dosage: 10 MG/KG, QD, 14 DAYS
     Route: 042
     Dates: start: 20190605, end: 20191210
  8. IRINOTECAN [Suspect]
     Active Substance: IRINOTECAN
     Indication: Neurofibromatosis
     Dosage: 75 MG/M2, 14 DAYSX2 CYCLES
     Route: 042
     Dates: start: 20190410, end: 20190520
  9. IRINOTECAN [Suspect]
     Active Substance: IRINOTECAN
     Dosage: 125 MG/M2
     Route: 042
     Dates: start: 20190605, end: 20191210

REACTIONS (15)
  - Astrocytoma [Not Recovered/Not Resolved]
  - Pancytopenia [Unknown]
  - Gastrointestinal disorder [Unknown]
  - Neutrophil count decreased [Unknown]
  - Full blood count abnormal [Unknown]
  - Speech disorder [Unknown]
  - Tremor [Unknown]
  - Dysstasia [Unknown]
  - Feeding disorder [Unknown]
  - Central nervous system lesion [Unknown]
  - Gait disturbance [Unknown]
  - Dysphagia [Unknown]
  - Coordination abnormal [Unknown]
  - Constipation [Unknown]
  - Hypertension [Unknown]

NARRATIVE: CASE EVENT DATE: 20211110
